FAERS Safety Report 14480945 (Version 1)
Quarter: 2018Q1

REPORT INFORMATION
  Report Type: Spontaneous
  Country: US (occurrence: US)
  Receive Date: 20180202
  Receipt Date: 20180202
  Transmission Date: 20180509
  Serious: No
  Sender: FDA-Public Use
  Company Number: US-HERITAGE PHARMACEUTICALS-2017HTG00070

PATIENT
  Age: 36 Year
  Sex: Male
  Weight: 71.2 kg

DRUGS (4)
  1. VITAMIN D [Concomitant]
     Active Substance: CHOLECALCIFEROL
  2. PAROMOMYCIN SULFATE. [Suspect]
     Active Substance: PAROMOMYCIN SULFATE
     Indication: PARASITIC GASTROENTERITIS
     Dosage: 1 CAPSULES, ONCE
     Route: 048
     Dates: start: 20170319, end: 20170319
  3. MULTIVITAMIN [Concomitant]
     Active Substance: VITAMINS
  4. FISH OIL [Concomitant]
     Active Substance: FISH OIL

REACTIONS (6)
  - Diarrhoea [Recovering/Resolving]
  - Balance disorder [Not Recovered/Not Resolved]
  - Tinnitus [Not Recovered/Not Resolved]
  - Hypoacusis [Not Recovered/Not Resolved]
  - Dizziness [Not Recovered/Not Resolved]
  - Head discomfort [Not Recovered/Not Resolved]

NARRATIVE: CASE EVENT DATE: 201703
